FAERS Safety Report 19016862 (Version 1)
Quarter: 2021Q1

REPORT INFORMATION
  Report Type: Spontaneous
  Country: US (occurrence: US)
  Receive Date: 20210317
  Receipt Date: 20210317
  Transmission Date: 20210420
  Serious: No
  Sender: FDA-Public Use
  Company Number: US-JNJFOC-20210302403

PATIENT
  Age: 65 Year
  Sex: Female
  Weight: 83.91 kg

DRUGS (5)
  1. SUDAFED [Suspect]
     Active Substance: PSEUDOEPHEDRINE HYDROCHLORIDE
     Indication: DEAFNESS UNILATERAL
     Route: 065
  2. PEPCID [Concomitant]
     Active Substance: FAMOTIDINE
     Indication: GASTROOESOPHAGEAL REFLUX DISEASE
     Dosage: OTC DOSE
     Route: 065
  3. SUDAFED [Suspect]
     Active Substance: PSEUDOEPHEDRINE HYDROCHLORIDE
     Indication: ADVERSE DRUG REACTION
  4. COVID?19 VACCINE [Concomitant]
     Indication: IMMUNISATION
     Dosage: SECOND DOSE, RIGHT ARM, UNKNOWN AMOUNT
     Route: 065
     Dates: start: 20210203
  5. GABAPENTIN. [Concomitant]
     Active Substance: GABAPENTIN
     Indication: FIBROMYALGIA
     Route: 065

REACTIONS (1)
  - Product use in unapproved indication [Unknown]
